FAERS Safety Report 20459661 (Version 1)
Quarter: 2022Q1

REPORT INFORMATION
  Report Type: Spontaneous
  Country: US (occurrence: US)
  Receive Date: 20220211
  Receipt Date: 20220211
  Transmission Date: 20220424
  Serious: No
  Sender: FDA-Public Use
  Company Number: US-VERICEL-US-VCEL-21-000081

PATIENT
  Sex: Female
  Weight: 101.2 kg

DRUGS (14)
  1. MACI [Suspect]
     Active Substance: AUTOLOGOUS CULTURED CHONDROCYTES\SUS SCROFA COLLAGEN
     Indication: Patellofemoral pain syndrome
     Dosage: 1 DOSAGE FORM, SINGLE
     Route: 050
     Dates: start: 20181127
  2. CELEBREX [Concomitant]
     Active Substance: CELECOXIB
     Indication: Arthralgia
     Dosage: 200 MILLIGRAM, BID
     Route: 048
  3. CELEBREX [Concomitant]
     Active Substance: CELECOXIB
     Indication: Chondromalacia
  4. CELEBREX [Concomitant]
     Active Substance: CELECOXIB
     Indication: Joint dislocation
  5. CELEBREX [Concomitant]
     Active Substance: CELECOXIB
     Indication: Patellofemoral pain syndrome
  6. CELEBREX [Concomitant]
     Active Substance: CELECOXIB
     Indication: Chondromalacia
  7. CELEBREX [Concomitant]
     Active Substance: CELECOXIB
     Indication: Pain
  8. TYLENOL [Concomitant]
     Active Substance: ACETAMINOPHEN
     Indication: Pain
     Dosage: UNK, PRN
     Route: 048
  9. NEURONTIN [Concomitant]
     Active Substance: GABAPENTIN
     Indication: Arthralgia
     Dosage: 300 MILLIGRAM
     Route: 048
  10. NEURONTIN [Concomitant]
     Active Substance: GABAPENTIN
     Indication: Chondromalacia
  11. NEURONTIN [Concomitant]
     Active Substance: GABAPENTIN
     Indication: Joint dislocation
  12. NEURONTIN [Concomitant]
     Active Substance: GABAPENTIN
     Indication: Patellofemoral pain syndrome
  13. NEURONTIN [Concomitant]
     Active Substance: GABAPENTIN
     Indication: Chondromalacia
  14. NEURONTIN [Concomitant]
     Active Substance: GABAPENTIN
     Indication: Pain

REACTIONS (1)
  - Treatment failure [Recovered/Resolved]

NARRATIVE: CASE EVENT DATE: 20181127
